FAERS Safety Report 5497837-7 (Version None)
Quarter: 2007Q4

REPORT INFORMATION
  Report Type: 
  Country: None (occurrence: None)
  Receive Date: 20071025
  Receipt Date: 20070307
  Transmission Date: 20080405
  Serious: No
  Sender: FDA-Public Use
  Company Number: A0642211A

PATIENT
  Age: 79 Year
  Sex: Male

DRUGS (16)
  1. ADVAIR DISKUS 100/50 [Suspect]
     Indication: CHRONIC OBSTRUCTIVE PULMONARY DISEASE
     Dosage: 1PUFF TWICE PER DAY
     Route: 055
     Dates: start: 20020101
  2. PREDNISONE [Concomitant]
  3. ASPIRIN [Concomitant]
  4. ALBUTEROL [Concomitant]
  5. ALPRAZOLAM [Concomitant]
  6. CITALOPRAM [Concomitant]
  7. LISINOPRIL [Concomitant]
  8. SPIRIVA [Concomitant]
  9. FLUTICASONE NASAL SPRAY [Concomitant]
  10. BACITRACIN [Concomitant]
  11. REFRESH PLUS [Concomitant]
  12. MUCINEX [Concomitant]
  13. UNKNOWN MEDICATION [Concomitant]
  14. ZITHROMAX [Concomitant]
  15. ZAPONEX [Concomitant]
  16. MILK OF MAGNESIA [Concomitant]

REACTIONS (2)
  - ORAL PAIN [None]
  - SKIN DISORDER [None]
